FAERS Safety Report 24776773 (Version 1)
Quarter: 2024Q4

REPORT INFORMATION
  Report Type: Spontaneous
  Country: FR (occurrence: FR)
  Receive Date: 20241226
  Receipt Date: 20241226
  Transmission Date: 20250115
  Serious: Yes (Hospitalization)
  Sender: ACCORD
  Company Number: None

PATIENT
  Age: 67 Year
  Sex: Male
  Weight: 57 kg

DRUGS (3)
  1. TEMOZOLOMIDE [Suspect]
     Active Substance: TEMOZOLOMIDE
     Indication: Glioblastoma
     Dates: start: 20240422, end: 20240813
  2. BACTRIM [Suspect]
     Active Substance: SULFAMETHOXAZOLE\TRIMETHOPRIM
     Indication: Pneumocystis jirovecii pneumonia
     Dosage: SOLUTION FOR INJECTION FOR INFUSION
     Dates: start: 20240818, end: 20240828
  3. BEVACIZUMAB [Suspect]
     Active Substance: BEVACIZUMAB
     Indication: Glioblastoma

REACTIONS (2)
  - Pancytopenia [Recovering/Resolving]
  - Folate deficiency [Not Recovered/Not Resolved]

NARRATIVE: CASE EVENT DATE: 20240821
